FAERS Safety Report 20978063 (Version 1)
Quarter: 2022Q2

REPORT INFORMATION
  Report Type: Spontaneous
  Country: CA (occurrence: CA)
  Receive Date: 20220618
  Receipt Date: 20220618
  Transmission Date: 20220721
  Serious: Yes (Death, Other)
  Sender: FDA-Public Use
  Company Number: CA-AMGEN-CANSP2022101451

PATIENT
  Age: 80 Year
  Sex: Male
  Weight: 69 kg

DRUGS (72)
  1. ARANESP [Suspect]
     Active Substance: DARBEPOETIN ALFA
     Indication: Anaemia
     Dosage: 10 MILLIGRAM, Q2WK
     Route: 042
  2. ARANESP [Suspect]
     Active Substance: DARBEPOETIN ALFA
     Dosage: 0.714 MICROGRAM, Q2WK
     Route: 042
  3. ACETAMINOPHEN [Suspect]
     Active Substance: ACETAMINOPHEN
     Indication: Analgesic therapy
     Dosage: 650.0 MILLIGRAM, QD
     Route: 048
  4. ASCORBIC ACID [Suspect]
     Active Substance: ASCORBIC ACID
     Route: 065
  5. ALLOPURINOL [Suspect]
     Active Substance: ALLOPURINOL
     Indication: Blood uric acid increased
     Dosage: 100 MILLIGRAM
     Route: 048
  6. AMIODARONE [Suspect]
     Active Substance: AMIODARONE
     Indication: Ventricular fibrillation
     Dosage: 150 MILLIGRAM
     Route: 042
  7. ATROVENT [Suspect]
     Active Substance: IPRATROPIUM BROMIDE
     Indication: Dyspnoea
     Dosage: UNK UNK, Q6H
     Route: 065
  8. BETA CAROTENE [Suspect]
     Active Substance: BETA CAROTENE
     Route: 065
  9. BETAMETHASONE [Suspect]
     Active Substance: BETAMETHASONE
     Indication: Swelling
     Dosage: AS REQUIRED
     Route: 061
  10. BIOTIN [Suspect]
     Active Substance: BIOTIN
     Indication: Constipation
     Dosage: 10 MILLIGRAM AS REQUIRED
     Route: 054
  11. BISACODYL [Suspect]
     Active Substance: BISACODYL
     Indication: Constipation
     Dosage: 10 MILLIGRAM, AS REQUIRED
     Route: 054
  12. CALCITRIOL [Suspect]
     Active Substance: CALCITRIOL
     Indication: Vitamin D
     Dosage: 0.25 MICROGRAM, AS REQUIRED
     Route: 048
  13. CALCITRIOL [Suspect]
     Active Substance: CALCITRIOL
     Dosage: 0.25 MICROGRAM, AS REQUIRED
     Route: 048
  14. CEFTRIAXONE SODIUM [Suspect]
     Active Substance: CEFTRIAXONE SODIUM
     Indication: Bacterial infection
     Dosage: 2 GRAM, QD
     Route: 042
  15. CHLORAMPHENICOL [Suspect]
     Active Substance: CHLORAMPHENICOL
     Route: 065
  16. DEXTROSE [Suspect]
     Active Substance: DEXTROSE
     Indication: Nutritional supplementation
     Dosage: 12.5 GRAM, AS REQUIRED
     Route: 065
  17. DIPYRONE [Suspect]
     Active Substance: DIPYRONE
     Route: 030
  18. DISTIGMINE BROMIDE [Suspect]
     Active Substance: DISTIGMINE BROMIDE
     Route: 065
  19. DOBUTAMINE [Suspect]
     Active Substance: DOBUTAMINE HYDROCHLORIDE
     Indication: Cardiogenic shock
     Route: 042
  20. DOCUSATE SODIUM [Suspect]
     Active Substance: DOCUSATE SODIUM
     Route: 065
  21. FLUTICASONE [Suspect]
     Active Substance: FLUTICASONE
     Route: 065
  22. FOSRENOL [Suspect]
     Active Substance: LANTHANUM CARBONATE
     Indication: Blood phosphorus increased
     Dosage: 500 MILLIGRAM, AS REQUIRED
     Route: 048
  23. FRAGMIN [Suspect]
     Active Substance: DALTEPARIN SODIUM
     Indication: Pulmonary embolism
     Route: 042
  24. GABAPENTIN [Suspect]
     Active Substance: GABAPENTIN
     Indication: Neuralgia
     Dosage: 100 MILLIGRAM
     Route: 048
  25. DEXTROSE [Suspect]
     Active Substance: DEXTROSE
     Route: 065
  26. HERBALS\PAULLINIA CUPANA SEED [Suspect]
     Active Substance: HERBALS\PAULLINIA CUPANA SEED
     Route: 065
  27. HEPARIN SODIUM [Suspect]
     Active Substance: HEPARIN SODIUM
     Indication: Anticoagulant therapy
     Dosage: 50 MILLIGRAM, AS REQUIRED
     Route: 042
  28. HEPARIN SODIUM [Suspect]
     Active Substance: HEPARIN SODIUM
     Dosage: 50 MILLIGRAM, AS REQUIRED
     Route: 042
  29. HORSE CHESTNUT [Suspect]
     Active Substance: HORSE CHESTNUT
     Route: 065
  30. HYDROMORPHONE [Suspect]
     Active Substance: HYDROMORPHONE
     Indication: Analgesic therapy
     Dosage: 1 MILLIGRAM, Q4H
     Route: 058
  31. HYDROMORPHONE [Suspect]
     Active Substance: HYDROMORPHONE
     Dosage: 6 MILLIGRAM, Q6H
     Route: 058
  32. IPRATROPIUM [Suspect]
     Active Substance: IPRATROPIUM
     Indication: Dyspnoea
     Route: 045
  33. LANSOPRAZOLE [Suspect]
     Active Substance: LANSOPRAZOLE
     Indication: Antacid therapy
     Dosage: 30 MILLIGRAM, QD
     Route: 048
  34. POLYETHYLENE GLYCOL 3350 [Suspect]
     Active Substance: POLYETHYLENE GLYCOL 3350
     Indication: Constipation
     Dosage: 17 GRAM, QD
     Route: 048
  35. MELATONIN [Suspect]
     Active Substance: MELATONIN
     Indication: Sleep disorder therapy
     Dosage: 3 MILLIGRAM
     Route: 048
  36. METRONIDAZOLE [Suspect]
     Active Substance: METRONIDAZOLE
     Indication: Bacterial infection
     Dosage: 500 MILLIGRAM, TID
     Route: 065
  37. NOREPINEPHRINE [Suspect]
     Active Substance: NOREPINEPHRINE
     Indication: Stress
     Route: 042
  38. INSULIN NOS [Suspect]
     Active Substance: INSULIN NOS
     Indication: Diabetes mellitus
     Route: 058
  39. ONDANSETRON [Suspect]
     Active Substance: ONDANSETRON
     Indication: Vomiting
     Dosage: 4 MILLIGRAM, TID
     Route: 042
  40. ONDANSETRON [Suspect]
     Active Substance: ONDANSETRON
     Indication: Nausea
     Dosage: 12 MILLIGRAM, Q8H
     Route: 042
  41. OSELTAMIVIR [Suspect]
     Active Substance: OSELTAMIVIR
     Route: 065
  42. PHYTONADIONE [Suspect]
     Active Substance: PHYTONADIONE
     Indication: Vitamin supplementation
     Dosage: 5 MILLIGRAM, AS REQUIRED
     Route: 042
  43. POLYETHYLENE GLYCOL [Suspect]
     Active Substance: POLYETHYLENE GLYCOL
     Route: 065
  44. POTASSIUM CHLORIDE [Suspect]
     Active Substance: POTASSIUM CHLORIDE
     Route: 065
  45. PROPYLENE GLYCOL [Suspect]
     Active Substance: PROPYLENE GLYCOL
     Route: 065
  46. RIBOFLAVIN [Suspect]
     Active Substance: RIBOFLAVIN
     Route: 065
  47. ALBUTEROL [Suspect]
     Active Substance: ALBUTEROL
     Indication: Chronic obstructive pulmonary disease
     Dosage: 4 UNK, QD
     Route: 045
  48. ALBUTEROL [Suspect]
     Active Substance: ALBUTEROL
     Dosage: UNK UNK, Q6H
     Route: 045
  49. SIMVASTATIN [Suspect]
     Active Substance: SIMVASTATIN
     Indication: Blood cholesterol increased
     Route: 065
  50. SIMVASTATIN [Suspect]
     Active Substance: SIMVASTATIN
     Dosage: 40 MILLIGRAM, QD
     Route: 065
  51. SODIUM CITRATE [Suspect]
     Active Substance: SODIUM CITRATE
     Indication: Thrombosis
     Dosage: 2.5 MILLILITER, AS REQUIRED
     Route: 065
  52. SODIUM FERRIC GLUCONATE COMPLEX [Suspect]
     Active Substance: SODIUM FERRIC GLUCONATE COMPLEX
     Indication: Iron deficiency
     Dosage: 125 MILLIGRAM, QWK
     Route: 042
  53. SODIUM FERRIC GLUCONATE COMPLEX [Suspect]
     Active Substance: SODIUM FERRIC GLUCONATE COMPLEX
     Dosage: 4.64 MILLIGRAM, Q4WK
     Route: 042
  54. SODIUM PHOSPHATE [Suspect]
     Active Substance: SODIUM PHOSPHATE
     Indication: Constipation
     Dosage: 133.0 MILLILITER
     Route: 054
  55. SUCROSE [Suspect]
     Active Substance: SUCROSE
     Indication: Iron deficiency
     Dosage: 125 MILLIGRAM, Q4WK
     Route: 065
  56. TRESIBA [Suspect]
     Active Substance: INSULIN DEGLUDEC
     Indication: Diabetes mellitus
     Route: 058
  57. UMECLIDINIUM BROMIDE [Suspect]
     Active Substance: UMECLIDINIUM BROMIDE
     Indication: Dyspnoea
     Dosage: 1.0 INTERNATIONAL UNIT
     Route: 048
  58. VASOPRESSIN [Suspect]
     Active Substance: VASOPRESSIN
     Route: 042
  59. VITAMIN B6 [Suspect]
     Active Substance: PYRIDOXINE HYDROCHLORIDE
     Indication: Vitamin supplementation
     Route: 048
  60. VITAMIN K1 [Suspect]
     Active Substance: PHYTONADIONE
     Route: 065
  61. WARFARIN [Suspect]
     Active Substance: WARFARIN
     Indication: Thrombosis
     Dosage: 2 MILLIGRAM
     Route: 048
  62. CEFTRIAXONE [Suspect]
     Active Substance: CEFTRIAXONE
     Dosage: 2 GRAM, QD
     Route: 042
  63. NATAMYCIN [Suspect]
     Active Substance: NATAMYCIN
     Route: 065
  64. HYDROCORTISONE ACETATE [Suspect]
     Active Substance: HYDROCORTISONE ACETATE
     Route: 065
  65. DULCOLAX NOS [Suspect]
     Active Substance: BISACODYL OR DOCUSATE SODIUM
     Indication: Constipation
     Dosage: 10 MILLIGRAM
     Route: 054
  66. PSYLLIUM HUSK [Suspect]
     Active Substance: PSYLLIUM HUSK
     Dosage: 5 MILLIGRAM
     Route: 042
  67. INSULIN ASPART [Suspect]
     Active Substance: INSULIN ASPART
     Indication: Diabetes mellitus
     Route: 058
  68. LANTHANUM CARBONATE [Suspect]
     Active Substance: LANTHANUM CARBONATE
     Dosage: 500 MILLIGRAM
     Route: 048
  69. POLYETHYLENE GLYCOLS [Suspect]
     Active Substance: POLYETHYLENE GLYCOLS
     Dosage: 17 GRAM, QD
     Route: 048
  70. PYRIDOXINE [Suspect]
     Active Substance: PYRIDOXINE
     Indication: Vitamin supplementation
     Dosage: UNK
     Route: 048
  71. WARFARIN SODIUM [Suspect]
     Active Substance: WARFARIN SODIUM
     Indication: Thrombosis
     Dosage: 2 GRAM, QD
     Route: 048
  72. AMIODARONE HYDROCHLORIDE [Suspect]
     Active Substance: AMIODARONE HYDROCHLORIDE
     Indication: Ventricular fibrillation
     Dosage: 150 MILLIGRAM, QD
     Route: 042

REACTIONS (18)
  - Death [Fatal]
  - Sepsis [Unknown]
  - Appendicitis [Unknown]
  - Ascites [Unknown]
  - Multiple organ dysfunction syndrome [Unknown]
  - Sepsis [Unknown]
  - Ventricular fibrillation [Unknown]
  - Cardiogenic shock [Unknown]
  - Abdominal distension [Unknown]
  - Abdominal pain [Unknown]
  - Appendicolith [Unknown]
  - Constipation [Unknown]
  - General physical health deterioration [Unknown]
  - Hyponatraemia [Unknown]
  - Nausea [Unknown]
  - Off label use [Unknown]
  - Stress [Unknown]
  - Vomiting [Unknown]
